FAERS Safety Report 10718112 (Version 1)
Quarter: 2015Q1

REPORT INFORMATION
  Report Type: Spontaneous
  Country: CN (occurrence: CN)
  Receive Date: 20150117
  Receipt Date: 20150117
  Transmission Date: 20150721
  Serious: Yes (Death, Hospitalization)
  Sender: FDA-Public Use
  Company Number: PHHY2015CN003779

PATIENT
  Age: 70 Year
  Sex: Female

DRUGS (1)
  1. ACLASTA [Suspect]
     Active Substance: ZOLEDRONIC ACID
     Indication: OSTEOPOROSIS
     Dosage: UNK
     Route: 042
     Dates: start: 20140609

REACTIONS (20)
  - Hepatitis B [Fatal]
  - Cholecystitis acute [Unknown]
  - Lung infection [Fatal]
  - Jaundice cholestatic [Unknown]
  - Scleral pigmentation [Unknown]
  - Cardiac discomfort [Unknown]
  - Blood pressure decreased [Fatal]
  - Abdominal rigidity [Fatal]
  - Multi-organ failure [Fatal]
  - Hepatic failure [Fatal]
  - Renal cyst [Unknown]
  - Yellow skin [Unknown]
  - Osteoporosis [Unknown]
  - Acute kidney injury [Fatal]
  - Peritonitis [Fatal]
  - Renal impairment [Unknown]
  - Body temperature fluctuation [Unknown]
  - Mucosal discolouration [Unknown]
  - Abdominal tenderness [Unknown]
  - Vomiting [Unknown]

NARRATIVE: CASE EVENT DATE: 20140610
